FAERS Safety Report 5689884-7 (Version None)
Quarter: 2008Q1

REPORT INFORMATION
  Report Type: 
  Country: None (occurrence: None)
  Receive Date: 20080331
  Receipt Date: 20080331
  Transmission Date: 20080703
  Serious: Yes (Hospitalization)
  Sender: FDA-Public Use
  Company Number: None

PATIENT
  Sex: Female
  Weight: 57 kg

DRUGS (2)
  1. CARBOPLATIN [Suspect]
     Dosage: 497 MG
  2. TAXOL [Suspect]
     Dosage: 275 MG

REACTIONS (8)
  - ABDOMINAL PAIN LOWER [None]
  - ABSCESS [None]
  - C-REACTIVE PROTEIN INCREASED [None]
  - CULTURE POSITIVE [None]
  - ESCHERICHIA INFECTION [None]
  - NEUTROPENIA [None]
  - PAIN [None]
  - PYREXIA [None]
